FAERS Safety Report 8142003-X (Version None)
Quarter: 2012Q1

REPORT INFORMATION
  Report Type: 
  Country: None (occurrence: None)
  Receive Date: 20120216
  Receipt Date: 20120207
  Transmission Date: 20120608
  Serious: Yes (Hospitalization, Other)
  Sender: FDA-Public Use
  Company Number: US-ASTRAZENECA-2011SE74349

PATIENT
  Age: 84 Year
  Sex: Female

DRUGS (21)
  1. CHLORDIAZEPOXIDE HCL AND CLIDINIUM BROMIDE [Suspect]
     Indication: ABDOMINAL RIGIDITY
     Dosage: 5MG/2.5MG ONE CAPSULE TID, AS REQUIRED
     Route: 048
  2. CHLORDIAZEPOXIDE HCL AND CLIDINIUM BROMIDE [Suspect]
     Indication: SMALL INTESTINAL OBSTRUCTION
     Dosage: 5MG/2.5MG ONE CAPSULE TID, AS REQUIRED
     Route: 048
  3. ACTOS [Concomitant]
     Route: 048
  4. LOSARTAN POTASSIUM [Concomitant]
     Route: 048
  5. RANITIDINE [Concomitant]
  6. MULTIVITAMIN/MINERAL SUPPLEMENT CAPLET [Concomitant]
     Route: 048
  7. ASPIRIN [Concomitant]
  8. CHLORDIAZEPOXIDE HCL AND CLIDINIUM BROMIDE [Suspect]
     Indication: ABDOMINAL PAIN
     Dosage: 5MG/2.5MG ONE CAPSULE TID, AS REQUIRED
     Route: 048
  9. GLIPIZIDE [Concomitant]
     Route: 048
  10. NEXIUM [Suspect]
     Route: 048
  11. VITAMIN A [Concomitant]
     Route: 048
  12. LISINOPRIL [Suspect]
     Route: 048
  13. FLOVENT HFA [Concomitant]
     Dosage: 110MCG, 2 PUFFS BID
     Route: 055
  14. CHLORDIAZEPOXIDE HCL AND CLIDINIUM BROMIDE [Suspect]
     Dosage: 5MG/2.5MG ONE CAPSULE BID, AS REQUIRED
     Route: 048
  15. CHLORDIAZEPOXIDE HCL AND CLIDINIUM BROMIDE [Suspect]
     Dosage: 5MG/2.5MG ONE CAPSULE BID, AS REQUIRED
     Route: 048
  16. TIAZAC [Concomitant]
     Route: 048
  17. SIMVASTATIN [Concomitant]
     Route: 048
  18. CHLORDIAZEPOXIDE HCL AND CLIDINIUM BROMIDE [Suspect]
     Dosage: 5MG/2.5MG ONE CAPSULE BID, AS REQUIRED
     Route: 048
  19. SYMBICORT [Concomitant]
     Dosage: 160/4.5 MCG, 2 PUFFS BID
     Route: 055
  20. METFORMIN HCL [Concomitant]
  21. ALBUTEROL [Concomitant]
     Dosage: 90MCG/1 ACTUATION, 1-2 PUFFS Q4H
     Route: 055

REACTIONS (11)
  - URINARY RETENTION [None]
  - LIGAMENT SPRAIN [None]
  - DRUG HYPERSENSITIVITY [None]
  - FAECALOMA [None]
  - FALL [None]
  - OSTEOARTHRITIS [None]
  - CONSTIPATION [None]
  - TYPE 2 DIABETES MELLITUS [None]
  - HYPERTENSION [None]
  - MUSCLE STRAIN [None]
  - OEDEMA PERIPHERAL [None]
